FAERS Safety Report 20608890 (Version 1)
Quarter: 2022Q1

REPORT INFORMATION
  Report Type: Spontaneous
  Country: FR (occurrence: FR)
  Receive Date: 20220317
  Receipt Date: 20220317
  Transmission Date: 20220423
  Serious: Yes (Congenital Anomaly, Other)
  Sender: FDA-Public Use
  Company Number: FR-ABBVIE-22K-056-4319949-00

PATIENT
  Sex: Female
  Weight: 3.28 kg

DRUGS (2)
  1. VALPROATE SODIUM [Suspect]
     Active Substance: VALPROATE SODIUM
     Indication: Maternal exposure timing unspecified
     Route: 064
  2. FOLIC ACID [Concomitant]
     Active Substance: FOLIC ACID
     Indication: Maternal exposure timing unspecified

REACTIONS (15)
  - Foetal anticonvulsant syndrome [Unknown]
  - Ear, nose and throat disorder [Unknown]
  - Dysmorphism [Unknown]
  - Arachnodactyly [Unknown]
  - Knee deformity [Unknown]
  - Heart disease congenital [Unknown]
  - Hypotonia [Unknown]
  - Tooth disorder [Unknown]
  - Anxiety [Unknown]
  - Muscle disorder [Unknown]
  - Haemangioma [Unknown]
  - Visual impairment [Unknown]
  - Joint laxity [Unknown]
  - Limb malformation [Unknown]
  - Foetal exposure during pregnancy [Unknown]

NARRATIVE: CASE EVENT DATE: 20170301
